FAERS Safety Report 20520867 (Version 2)
Quarter: 2022Q1

REPORT INFORMATION
  Report Type: Report from Study
  Country: CR (occurrence: CR)
  Receive Date: 20220225
  Receipt Date: 20220322
  Transmission Date: 20220423
  Serious: Yes (Hospitalization, Other)
  Sender: FDA-Public Use
  Company Number: CR-BIOGEN-2022BI01099384

PATIENT
  Age: 0 Year

DRUGS (2)
  1. TYSABRI [Suspect]
     Active Substance: NATALIZUMAB
     Indication: Maternal exposure timing unspecified
     Route: 064
     Dates: start: 20171210, end: 20211220
  2. TYSABRI [Suspect]
     Active Substance: NATALIZUMAB
     Route: 064
     Dates: start: 20220316

REACTIONS (7)
  - Jaundice neonatal [Not Recovered/Not Resolved]
  - Weight decrease neonatal [Not Recovered/Not Resolved]
  - Foetal distress syndrome [Unknown]
  - Sepsis neonatal [Unknown]
  - Neonatal respiratory failure [Recovered/Resolved]
  - Foetal exposure during pregnancy [Recovered/Resolved]
  - Exposure via breast milk [Not Recovered/Not Resolved]

NARRATIVE: CASE EVENT DATE: 20220213
